FAERS Safety Report 5026339-7 (Version None)
Quarter: 2006Q2

REPORT INFORMATION
  Report Type: 
  Country: None (occurrence: None)
  Receive Date: 20060615
  Receipt Date: 20060608
  Transmission Date: 20061013
  Serious: Yes (Other)
  Sender: FDA-Public Use
  Company Number: PHHO2006CL09475

PATIENT
  Age: 37 Year
  Sex: Female

DRUGS (3)
  1. EUTIROX [Concomitant]
  2. RAVOTRIL [Concomitant]
  3. ZELMAC / HTF 919A [Suspect]
     Dosage: HALF TABLET QD
     Route: 048
     Dates: start: 20060301

REACTIONS (4)
  - DIARRHOEA [None]
  - DRUG EXPOSURE BEFORE PREGNANCY [None]
  - DRUG EXPOSURE DURING PREGNANCY [None]
  - PREGNANCY [None]
